FAERS Safety Report 9715300 (Version 1)
Quarter: 2013Q4

REPORT INFORMATION
  Report Type: Spontaneous
  Country: US (occurrence: US)
  Receive Date: 20131127
  Receipt Date: 20131127
  Transmission Date: 20140711
  Serious: No
  Sender: FDA-Public Use
  Company Number: US-009507513-1311USA010088

PATIENT
  Age: 49 Year
  Sex: Female

DRUGS (3)
  1. PRINIVIL [Suspect]
     Indication: HYPERTENSION
     Dosage: 20 MG, UNK
     Route: 048
  2. HYDROCHLOROTHIAZIDE [Concomitant]
  3. LEVOTHYROXINE SODIUM [Concomitant]

REACTIONS (1)
  - Small bowel angioedema [Unknown]
